FAERS Safety Report 7007204-2 (Version None)
Quarter: 2010Q3

REPORT INFORMATION
  Report Type: 
  Country: None (occurrence: None)
  Receive Date: 20100917
  Receipt Date: 20100803
  Transmission Date: 20110219
  Serious: Yes (Hospitalization, Other)
  Sender: FDA-Public Use
  Company Number: 2008BH004256

PATIENT
  Age: 31 Year
  Sex: Female
  Weight: 87.9978 kg

DRUGS (38)
  1. HEPARIN SODIUM [Suspect]
     Indication: ANGIOPLASTY
     Dosage: SEE IMAGE
     Route: 042
     Dates: start: 20070209, end: 20070209
  2. HEPARIN SODIUM [Suspect]
     Indication: CENTRAL VENOUS CATHETERISATION
     Dosage: SEE IMAGE
     Route: 042
     Dates: start: 20070209, end: 20070209
  3. HEPARIN SODIUM [Suspect]
     Indication: ANGIOPLASTY
     Dosage: SEE IMAGE
     Route: 042
     Dates: start: 20070210, end: 20070210
  4. HEPARIN SODIUM [Suspect]
     Indication: CENTRAL VENOUS CATHETERISATION
     Dosage: SEE IMAGE
     Route: 042
     Dates: start: 20070210, end: 20070210
  5. HEPARIN SODIUM [Suspect]
     Indication: ANGIOPLASTY
     Dosage: SEE IMAGE
     Route: 042
     Dates: start: 20070420, end: 20070420
  6. HEPARIN SODIUM [Suspect]
     Indication: CENTRAL VENOUS CATHETERISATION
     Dosage: SEE IMAGE
     Route: 042
     Dates: start: 20070420, end: 20070420
  7. HEPARIN SODIUM [Suspect]
     Indication: ANGIOPLASTY
     Dosage: SEE IMAGE
     Route: 042
     Dates: start: 20070421, end: 20070421
  8. HEPARIN SODIUM [Suspect]
     Indication: CENTRAL VENOUS CATHETERISATION
     Dosage: SEE IMAGE
     Route: 042
     Dates: start: 20070421, end: 20070421
  9. HEPARIN SODIUM [Suspect]
     Indication: ANGIOPLASTY
     Dosage: SEE IMAGE
     Route: 042
     Dates: start: 20070801, end: 20070807
  10. HEPARIN SODIUM [Suspect]
     Indication: CENTRAL VENOUS CATHETERISATION
     Dosage: SEE IMAGE
     Route: 042
     Dates: start: 20070801, end: 20070807
  11. HEPARIN SODIUM [Suspect]
     Indication: ANGIOPLASTY
     Dosage: SEE IMAGE
     Route: 042
     Dates: start: 20070912, end: 20070912
  12. HEPARIN SODIUM [Suspect]
     Indication: CENTRAL VENOUS CATHETERISATION
     Dosage: SEE IMAGE
     Route: 042
     Dates: start: 20070912, end: 20070912
  13. HEPARIN SODIUM [Suspect]
     Indication: ANGIOPLASTY
     Dosage: SEE IMAGE
     Route: 042
     Dates: start: 20071027, end: 20071027
  14. HEPARIN SODIUM [Suspect]
     Indication: CENTRAL VENOUS CATHETERISATION
     Dosage: SEE IMAGE
     Route: 042
     Dates: start: 20071027, end: 20071027
  15. HEPARIN SODIUM [Suspect]
     Indication: ANGIOPLASTY
     Dosage: SEE IMAGE
     Route: 042
     Dates: start: 20080101, end: 20080101
  16. HEPARIN SODIUM [Suspect]
     Indication: CENTRAL VENOUS CATHETERISATION
     Dosage: SEE IMAGE
     Route: 042
     Dates: start: 20080101, end: 20080101
  17. HEPARIN SODIUM [Suspect]
     Indication: ANGIOPLASTY
     Dosage: SEE IMAGE
     Route: 042
     Dates: start: 20080228, end: 20080228
  18. HEPARIN SODIUM [Suspect]
     Indication: CENTRAL VENOUS CATHETERISATION
     Dosage: SEE IMAGE
     Route: 042
     Dates: start: 20080228, end: 20080228
  19. HEPARIN SODIUM [Suspect]
     Indication: ANGIOPLASTY
     Dosage: SEE IMAGE
     Route: 042
     Dates: start: 20060901, end: 20080301
  20. HEPARIN SODIUM [Suspect]
     Indication: CENTRAL VENOUS CATHETERISATION
     Dosage: SEE IMAGE
     Route: 042
     Dates: start: 20060901, end: 20080301
  21. HEPARIN SODIUM [Suspect]
     Indication: ANGIOPLASTY
     Dosage: SEE IMAGE
     Route: 042
     Dates: start: 20080713, end: 20080714
  22. HEPARIN SODIUM [Suspect]
     Indication: CENTRAL VENOUS CATHETERISATION
     Dosage: SEE IMAGE
     Route: 042
     Dates: start: 20080713, end: 20080714
  23. HEPARIN SODIUM [Suspect]
     Indication: PRODUCT USED FOR UNKNOWN INDICATION
     Dosage: IV
     Route: 042
     Dates: start: 20071210, end: 20080301
  24. HEPARIN SODIUM 5,000 UNITS IN DEXTROSE 5% [Suspect]
     Indication: PRODUCT USED FOR UNKNOWN INDICATION
     Dosage: IV
     Route: 042
     Dates: start: 20080125, end: 20080128
  25. LOVENOX [Concomitant]
  26. METOPROLOL TARTRATE [Concomitant]
  27. VITAMIN B-12 [Concomitant]
  28. MULTI-VITAMINS [Concomitant]
  29. LORTAB [Concomitant]
  30. PHENERGAN [Concomitant]
  31. WARFARIN SODIUM [Concomitant]
  32. DIHYDROERGOTAMINE MESYLATE [Concomitant]
  33. HYDROCODONE [Concomitant]
  34. REGLAN [Concomitant]
  35. VALIUM [Concomitant]
  36. SOMA [Concomitant]
  37. OXYCONTIN [Concomitant]
  38. AMBIEN [Concomitant]

REACTIONS (36)
  - BACK PAIN [None]
  - BLOOD COUNT ABNORMAL [None]
  - BREAST MASS [None]
  - CELLULITIS [None]
  - CHEST DISCOMFORT [None]
  - CHEST PAIN [None]
  - DEEP VEIN THROMBOSIS [None]
  - DRUG TOXICITY [None]
  - DYSGEUSIA [None]
  - DYSPNOEA [None]
  - EMBOLISM ARTERIAL [None]
  - FACE OEDEMA [None]
  - FALL [None]
  - FIBROSIS [None]
  - FLUSHING [None]
  - HAEMOGLOBIN DECREASED [None]
  - HAEMOPTYSIS [None]
  - HEADACHE [None]
  - HYPERCOAGULATION [None]
  - HYPOTENSION [None]
  - INJECTION SITE INFECTION [None]
  - INJECTION SITE IRRITATION [None]
  - INTERNATIONAL NORMALISED RATIO INCREASED [None]
  - JOINT DISLOCATION [None]
  - LOCAL SWELLING [None]
  - MIGRAINE [None]
  - PALPITATIONS [None]
  - RASH [None]
  - RECTAL HAEMORRHAGE [None]
  - SEPSIS [None]
  - STAPHYLOCOCCAL INFECTION [None]
  - SUPERIOR VENA CAVAL OCCLUSION [None]
  - SUPERIOR VENA CAVAL STENOSIS [None]
  - THROMBOSIS [None]
  - THROMBOSIS IN DEVICE [None]
  - WOUND DEHISCENCE [None]
